FAERS Safety Report 16338686 (Version 2)
Quarter: 2019Q2

REPORT INFORMATION
  Report Type: Report from Study
  Country: US (occurrence: US)
  Receive Date: 20190521
  Receipt Date: 20190527
  Transmission Date: 20190711
  Serious: Yes (Other)
  Sender: FDA-Public Use
  Company Number: US-ROCHE-2320541

PATIENT
  Sex: Female
  Weight: 65.83 kg

DRUGS (7)
  1. MELOXICAM. [Concomitant]
     Active Substance: MELOXICAM
     Indication: ARTHRALGIA
     Dosage: ONGOING : YES
     Route: 048
  2. TOPAMAX [Concomitant]
     Active Substance: TOPIRAMATE
     Indication: HEADACHE
     Dosage: HS ;ONGOING: YES
     Route: 048
  3. ESTRACE [Concomitant]
     Active Substance: ESTRADIOL
     Dosage: ONGOING : YES
     Route: 048
  4. OCREVUS [Suspect]
     Active Substance: OCRELIZUMAB
     Route: 042
     Dates: start: 20180307
  5. IMITREX [Concomitant]
     Active Substance: SUMATRIPTAN SUCCINATE
     Indication: HEADACHE
     Dosage: PRN ;ONGOING: YES
     Route: 048
  6. OCREVUS [Suspect]
     Active Substance: OCRELIZUMAB
     Indication: RELAPSING-REMITTING MULTIPLE SCLEROSIS
     Route: 042
     Dates: start: 201709
  7. VITAMIN D3 [Concomitant]
     Active Substance: CHOLECALCIFEROL
     Dosage: ONGOING : YES
     Route: 048

REACTIONS (6)
  - Middle ear effusion [Recovered/Resolved]
  - Pneumonia [Recovered/Resolved]
  - Tympanic membrane perforation [Unknown]
  - Immunodeficiency [Not Recovered/Not Resolved]
  - Hypoacusis [Not Recovered/Not Resolved]
  - Arthralgia [Not Recovered/Not Resolved]
